FAERS Safety Report 12372520 (Version 1)
Quarter: 2016Q2

REPORT INFORMATION
  Report Type: Spontaneous
  Country: US (occurrence: US)
  Receive Date: 20160516
  Receipt Date: 20160516
  Transmission Date: 20160815
  Serious: Yes (Hospitalization, Other)
  Sender: FDA-Public Use
  Company Number: US-BAXTER-2016BAX024222

PATIENT
  Age: 22 Year
  Sex: Male

DRUGS (4)
  1. METRONIDAZOLE INJECTION, USP [Suspect]
     Active Substance: METRONIDAZOLE
     Indication: BRAIN ABSCESS
     Route: 042
  2. CEFTRIAXONE. [Concomitant]
     Active Substance: CEFTRIAXONE
     Indication: BRAIN ABSCESS
     Route: 042
  3. LINEZOLID. [Concomitant]
     Active Substance: LINEZOLID
     Indication: BRAIN ABSCESS
     Route: 042
  4. VANCOMYCIN [Concomitant]
     Active Substance: VANCOMYCIN
     Indication: BRAIN ABSCESS
     Route: 065

REACTIONS (7)
  - Nervous system disorder [Recovering/Resolving]
  - Encephalopathy [Recovered/Resolved]
  - Ataxia [Recovered/Resolved]
  - Seizure [Unknown]
  - Polyneuropathy [Not Recovered/Not Resolved]
  - Gait disturbance [Recovered/Resolved]
  - Neurotoxicity [Recovered/Resolved]
